FAERS Safety Report 9471215 (Version 1)
Quarter: 2013Q3

REPORT INFORMATION
  Report Type: Spontaneous
  Country: US (occurrence: US)
  Receive Date: 20130822
  Receipt Date: 20130822
  Transmission Date: 20140515
  Serious: No
  Sender: FDA-Public Use
  Company Number: US-TARO-2013P1000359

PATIENT
  Age: 99 Year
  Sex: Male
  Weight: 72.58 kg

DRUGS (6)
  1. TERBINAFINE HCL CREAM 1% (ATHLETES FOOT) [Suspect]
     Route: 061
     Dates: start: 20121228
  2. FLUCONAZOLE [Suspect]
     Route: 048
     Dates: start: 20121228, end: 20130101
  3. LISINOPRIL [Concomitant]
     Route: 048
  4. BABY ASPIRIN [Concomitant]
     Route: 048
  5. MULTIVITAMIN [Concomitant]
  6. ^GLAUCOMA EYE DROPS^ [Concomitant]
     Route: 047

REACTIONS (2)
  - Erythema [Recovered/Resolved]
  - Skin exfoliation [Recovering/Resolving]
